FAERS Safety Report 9842879 (Version 1)
Quarter: 2014Q1

REPORT INFORMATION
  Report Type: Spontaneous
  Country: US (occurrence: US)
  Receive Date: 20140124
  Receipt Date: 20140124
  Transmission Date: 20141002
  Serious: No
  Sender: FDA-Public Use
  Company Number: US-PFIZER INC-2014020285

PATIENT
  Age: 41 Year
  Sex: Male
  Weight: 97.51 kg

DRUGS (6)
  1. LYRICA [Suspect]
     Indication: FIBROMYALGIA
     Dosage: 75 MG, 2X/DAY
     Route: 048
     Dates: start: 201307, end: 201307
  2. LYRICA [Suspect]
     Indication: NEURALGIA
     Dosage: 100 MG, 2X/DAY
     Route: 048
     Dates: start: 201307
  3. LYRICA [Suspect]
     Indication: PAIN IN EXTREMITY
  4. LYRICA [Suspect]
     Indication: PAIN
  5. NEURONTIN [Concomitant]
     Indication: DEPRESSION
     Dosage: 800 MG, 3X/DAY
     Route: 048
  6. NEURONTIN [Concomitant]
     Indication: MOOD ALTERED

REACTIONS (3)
  - Intentional drug misuse [Unknown]
  - Nasopharyngitis [Unknown]
  - Pain [Unknown]
